FAERS Safety Report 15655241 (Version 3)
Quarter: 2019Q2

REPORT INFORMATION
  Report Type: Spontaneous
  Country: CA (occurrence: CA)
  Receive Date: 20181126
  Receipt Date: 20190415
  Transmission Date: 20190711
  Serious: Yes (Congenital Anomaly, Other)
  Sender: FDA-Public Use
  Company Number: CA-APOTEX-2018AP025337

PATIENT
  Sex: Female

DRUGS (1)
  1. PAXIL [Suspect]
     Active Substance: PAROXETINE HYDROCHLORIDE
     Indication: DEPRESSION
     Dosage: 20 MG, BID
     Route: 064
     Dates: start: 19980714, end: 19981022

REACTIONS (6)
  - Skin papilloma [Unknown]
  - Transposition of the great vessels [Unknown]
  - Exposure during pregnancy [Unknown]
  - Patent ductus arteriosus [Unknown]
  - Aortic valve incompetence [Unknown]
  - Congenital coronary artery malformation [Unknown]
